FAERS Safety Report 4484098-0 (Version None)
Quarter: 2004Q4

REPORT INFORMATION
  Report Type: 
  Country: None (occurrence: None)
  Receive Date: 20041021
  Receipt Date: 20041006
  Transmission Date: 20050328
  Serious: Yes (Death)
  Sender: FDA-Public Use
  Company Number: 2004AL000953

PATIENT
  Age: 19 Year

DRUGS (2)
  1. HYDRAMINE COUGH SYRUP (DIPHENHYDRAMINE HCL) (ALPHARMA) [Suspect]
     Dosage: PO
     Route: 048
  2. HYDRAMINE [Suspect]

REACTIONS (2)
  - COMPLETED SUICIDE [None]
  - OVERDOSE [None]
